FAERS Safety Report 8448065-4 (Version None)
Quarter: 2012Q2

REPORT INFORMATION
  Report Type: 
  Country: None (occurrence: None)
  Receive Date: 20120612
  Receipt Date: 20120604
  Transmission Date: 20120825
  Serious: Yes (Hospitalization, Disabling)
  Sender: FDA-Public Use
  Company Number: 2012SP030337

PATIENT
  Age: 50 Year
  Sex: Male

DRUGS (5)
  1. MEGACE [Concomitant]
  2. ZOLOFT [Concomitant]
  3. RIBAVIRIN [Suspect]
     Indication: PRODUCT USED FOR UNKNOWN INDICATION
  4. VICTRELIS [Suspect]
     Indication: HEPATITIS C
     Dosage: ; PO
     Route: 048
     Dates: start: 20120101
  5. PEG-INTRON [Suspect]
     Indication: PRODUCT USED FOR UNKNOWN INDICATION

REACTIONS (4)
  - HAEMOGLOBIN DECREASED [None]
  - DYSPNOEA [None]
  - ABDOMINAL DISTENSION [None]
  - ARTHRALGIA [None]
